FAERS Safety Report 19924099 (Version 1)
Quarter: 2021Q4

REPORT INFORMATION
  Report Type: Spontaneous
  Country: US (occurrence: US)
  Receive Date: 20211005
  Receipt Date: 20211005
  Transmission Date: 20220304
  Serious: No
  Sender: FDA-Public Use
  Company Number: None

PATIENT

DRUGS (1)
  1. PERMETHRIN [Suspect]
     Active Substance: PERMETHRIN

REACTIONS (7)
  - Wrong product stored [None]
  - Product name confusion [None]
  - Product name confusion [None]
  - Product label issue [None]
  - Physical product label issue [None]
  - Contraindicated product administered [None]
  - Product design issue [None]
